FAERS Safety Report 17872376 (Version 6)
Quarter: 2021Q2

REPORT INFORMATION
  Report Type: Report from Study
  Country: MX (occurrence: MX)
  Receive Date: 20200608
  Receipt Date: 20210401
  Transmission Date: 20210717
  Serious: Yes (Other)
  Sender: FDA-Public Use
  Company Number: PHHY2018MX102207

PATIENT
  Age: 50 Year
  Sex: Female
  Weight: 64 kg

DRUGS (5)
  1. METFORMIN HYDROCHLORIDE AND GLIBENCLAMIDE [Suspect]
     Active Substance: GLYBURIDE\METFORMIN HYDROCHLORIDE
     Indication: DIABETES MELLITUS
     Dosage: 1 DF (500/5 MG), QD, AT MIDDAY, ABOUT 8 YEARS AGO
     Route: 048
  2. GALVUS MET [Suspect]
     Active Substance: METFORMIN HYDROCHLORIDE\VILDAGLIPTIN
     Dosage: 1 DF, BID (IN THE MORNING AND AT NIGHT), LIKE 7 YEARS AGO
     Route: 048
  3. METFORMIN HYDROCHLORIDE AND GLIBENCLAMIDE [Suspect]
     Active Substance: GLYBURIDE\METFORMIN HYDROCHLORIDE
     Dosage: 1 DF (500/5 MG), BID, IN MORNING AND AT NIGHT
     Route: 048
  4. GALVUS MET [Suspect]
     Active Substance: METFORMIN HYDROCHLORIDE\VILDAGLIPTIN
     Indication: DIABETES MELLITUS
     Dosage: 1 DF (METFORMIN 850 MG, VILDAGLIPTIN 50 MG), BID (IN THE MORNING AND AT NIGHT)
     Route: 048
     Dates: start: 20130224
  5. METFORMIN HYDROCHLORIDE AND GLIBENCLAMIDE [Suspect]
     Active Substance: GLYBURIDE\METFORMIN HYDROCHLORIDE
     Dosage: 1 DF (500/5 MG), QD, AT MIDDAY
     Route: 048

REACTIONS (29)
  - Influenza [Unknown]
  - Cough [Unknown]
  - Nervousness [Recovering/Resolving]
  - Headache [Not Recovered/Not Resolved]
  - Unevaluable event [Recovered/Resolved]
  - Balance disorder [Unknown]
  - Blood cholesterol increased [Recovering/Resolving]
  - Insomnia [Unknown]
  - Asthenia [Unknown]
  - Loss of consciousness [Unknown]
  - Hypertension [Not Recovered/Not Resolved]
  - Dizziness [Recovering/Resolving]
  - Blood triglycerides increased [Recovering/Resolving]
  - Tension [Unknown]
  - Anxiety [Unknown]
  - Abdominal infection [Recovering/Resolving]
  - Feeling abnormal [Unknown]
  - Contusion [Unknown]
  - Arthralgia [Unknown]
  - Fatigue [Unknown]
  - Blood glucose increased [Recovering/Resolving]
  - Inappropriate schedule of product administration [Unknown]
  - Back pain [Unknown]
  - Feeling cold [Unknown]
  - Abdominal discomfort [Recovering/Resolving]
  - Asthenopia [Unknown]
  - Malaise [Not Recovered/Not Resolved]
  - Blood glucose decreased [Unknown]
  - Vomiting [Recovering/Resolving]

NARRATIVE: CASE EVENT DATE: 20180909
